FAERS Safety Report 8226313-3 (Version None)
Quarter: 2012Q1

REPORT INFORMATION
  Report Type: 
  Country: None (occurrence: None)
  Receive Date: 20120321
  Receipt Date: 20120313
  Transmission Date: 20120608
  Serious: Yes (Other)
  Sender: FDA-Public Use
  Company Number: US-ROCHE-1022822

PATIENT
  Sex: Female
  Weight: 107.14 kg

DRUGS (1)
  1. ACCUTANE [Suspect]
     Indication: ACNE CYSTIC
     Dates: start: 20020101, end: 20020701

REACTIONS (3)
  - ABSCESS INTESTINAL [None]
  - EMOTIONAL DISTRESS [None]
  - DIVERTICULITIS [None]
